FAERS Safety Report 5279957-5 (Version None)
Quarter: 2007Q1

REPORT INFORMATION
  Report Type: 
  Country: None (occurrence: None)
  Receive Date: 20070329
  Receipt Date: 20070322
  Transmission Date: 20070707
  Serious: Yes (Other)
  Sender: FDA-Public Use
  Company Number: US-JNJFOC-20070305730

PATIENT
  Sex: Female
  Weight: 99.79 kg

DRUGS (4)
  1. DURAGESIC-100 [Suspect]
     Dosage: 100 UG/HR PLUS 75 UG/HR PATCH
     Route: 062
  2. DURAGESIC-100 [Suspect]
     Indication: INTERVERTEBRAL DISC PROTRUSION
     Dosage: 100 UG/HR PLUS 50 UG/HR PATCH
     Route: 062
  3. XANAX [Concomitant]
     Indication: ANXIETY
     Dosage: 1 THREE TIMES A DAY, AS NEEDED
     Route: 048
  4. METHADOSE [Concomitant]
     Indication: BREAKTHROUGH PAIN
     Dosage: 1 THREE TIMES A DAY, AS NEEDED
     Route: 048

REACTIONS (4)
  - DRUG EFFECT DECREASED [None]
  - INTERVERTEBRAL DISC PROTRUSION [None]
  - PHARMACEUTICAL PRODUCT COMPLAINT [None]
  - WRONG TECHNIQUE IN DRUG USAGE PROCESS [None]
